FAERS Safety Report 10263655 (Version 1)
Quarter: 2014Q2

REPORT INFORMATION
  Report Type: Spontaneous
  Country: US (occurrence: US)
  Receive Date: 20140626
  Receipt Date: 20140626
  Transmission Date: 20141212
  Serious: Yes (Hospitalization, Other)
  Sender: FDA-Public Use
  Company Number: US-GILEAD-2014-0106774

PATIENT
  Sex: Female

DRUGS (8)
  1. LETAIRIS [Suspect]
     Indication: PULMONARY ARTERIAL HYPERTENSION
     Dosage: 10 MG, QD
     Route: 065
     Dates: start: 20090116
  2. REVATIO [Concomitant]
  3. LIPITOR [Concomitant]
  4. TYLENOL                            /00020001/ [Concomitant]
  5. CLARITIN                           /00917501/ [Concomitant]
  6. FUROSEMIDE [Concomitant]
  7. WARFARIN [Concomitant]
  8. FLOVENT [Concomitant]

REACTIONS (1)
  - Pneumonia [Recovering/Resolving]
